FAERS Safety Report 20729744 (Version 1)
Quarter: 2022Q2

REPORT INFORMATION
  Report Type: Spontaneous
  Country: US (occurrence: US)
  Receive Date: 20220420
  Receipt Date: 20220420
  Transmission Date: 20220720
  Serious: No
  Sender: FDA-Public Use
  Company Number: US-ELI_LILLY_AND_COMPANY-US202203010255

PATIENT
  Sex: Female

DRUGS (1)
  1. TRULICITY [Suspect]
     Active Substance: DULAGLUTIDE
     Indication: Type 2 diabetes mellitus
     Dosage: 0.75 MG, UNKNOWN
     Route: 058
     Dates: start: 20211120

REACTIONS (16)
  - Arthralgia [Unknown]
  - Breast cyst [Unknown]
  - Pain [Unknown]
  - Blood glucose increased [Unknown]
  - Inflammation [Unknown]
  - Blood calcium increased [Recovered/Resolved]
  - Feeling abnormal [Unknown]
  - Mobility decreased [Unknown]
  - Fatigue [Unknown]
  - Abdominal discomfort [Unknown]
  - Abdominal distension [Unknown]
  - Swelling face [Unknown]
  - Constipation [Unknown]
  - Impaired gastric emptying [Unknown]
  - Lethargy [Unknown]
  - Dyspepsia [Unknown]
